FAERS Safety Report 18345402 (Version 3)
Quarter: 2020Q4

REPORT INFORMATION
  Report Type: Spontaneous
  Country: JP (occurrence: JP)
  Receive Date: 20201005
  Receipt Date: 20201102
  Transmission Date: 20210114
  Serious: Yes (Death, Other)
  Sender: FDA-Public Use
  Company Number: JP-B.I. PHARMACEUTICALS,INC./RIDGEFIELD-2020-BI-052542

PATIENT
  Age: 80 Year
  Sex: Female

DRUGS (1)
  1. PRIZBIND [Suspect]
     Active Substance: IDARUCIZUMAB
     Indication: PROCOAGULANT THERAPY
     Route: 048
     Dates: start: 20200727, end: 20200727

REACTIONS (3)
  - Lymphoma [Fatal]
  - Lung neoplasm malignant [Fatal]
  - Neoplasm malignant [Fatal]
